FAERS Safety Report 18632722 (Version 1)
Quarter: 2020Q4

REPORT INFORMATION
  Report Type: Spontaneous
  Country: US (occurrence: US)
  Receive Date: 20201218
  Receipt Date: 20201218
  Transmission Date: 20210114
  Serious: No
  Sender: FDA-Public Use
  Company Number: US-TEVA-2020-US-1858938

PATIENT
  Age: 73 Year
  Sex: Female

DRUGS (3)
  1. ESCITALOPRAM TEVA [Suspect]
     Active Substance: ESCITALOPRAM OXALATE
     Indication: DEPRESSION
     Route: 065
     Dates: start: 2020
  2. ESCITALOPRAM TEVA [Suspect]
     Active Substance: ESCITALOPRAM OXALATE
     Indication: STRESS
     Dosage: 10 MILLIGRAM DAILY; HAS GRADUALLY BEEN TITRATED UP TO THE FULL DOSE OF 10 MG A DAY
     Route: 065
     Dates: start: 2020
  3. PERCOCET [Suspect]
     Active Substance: ACETAMINOPHEN\OXYCODONE HYDROCHLORIDE
     Route: 065

REACTIONS (9)
  - Stress urinary incontinence [Not Recovered/Not Resolved]
  - Middle insomnia [Unknown]
  - Therapeutic product effect incomplete [Unknown]
  - Breast conserving surgery [Unknown]
  - Blood pressure increased [Recovered/Resolved]
  - Gait disturbance [Not Recovered/Not Resolved]
  - Tremor [Recovered/Resolved]
  - Urge incontinence [Not Recovered/Not Resolved]
  - Scar excision [Unknown]

NARRATIVE: CASE EVENT DATE: 2020
